FAERS Safety Report 25403301 (Version 2)
Quarter: 2025Q2

REPORT INFORMATION
  Report Type: Spontaneous
  Country: US (occurrence: US)
  Receive Date: 20250605
  Receipt Date: 20250613
  Transmission Date: 20250716
  Serious: No
  Sender: SANOFI AVENTIS
  Company Number: US-SA-2025SA159111

PATIENT
  Age: 38 Year
  Sex: Female

DRUGS (9)
  1. DUPIXENT [Suspect]
     Active Substance: DUPILUMAB
     Indication: Dermatitis atopic
     Route: 058
     Dates: start: 20211213, end: 20211213
  2. DUPIXENT [Suspect]
     Active Substance: DUPILUMAB
     Dosage: 300 MG, QOW
     Route: 058
     Dates: start: 202112
  3. DUPIXENT [Suspect]
     Active Substance: DUPILUMAB
     Dosage: 300 MG, QOW
     Route: 058
     Dates: start: 202307
  4. DUPIXENT [Suspect]
     Active Substance: DUPILUMAB
     Dosage: 300 MG, QOW
     Route: 058
     Dates: start: 202505
  5. ENTRESTO [Concomitant]
     Active Substance: SACUBITRIL\VALSARTAN
  6. MOMETASONE [Concomitant]
     Active Substance: MOMETASONE
  7. JARDIANCE [Concomitant]
     Active Substance: EMPAGLIFLOZIN
  8. CARVEDILOL [Concomitant]
     Active Substance: CARVEDILOL
  9. CLOBETASOL [Concomitant]
     Active Substance: CLOBETASOL

REACTIONS (2)
  - Rebound eczema [Unknown]
  - Maternal exposure during pregnancy [Unknown]
